FAERS Safety Report 10080372 (Version 1)
Quarter: 2014Q2

REPORT INFORMATION
  Report Type: Spontaneous
  Country: FR (occurrence: FR)
  Receive Date: 20140415
  Receipt Date: 20140415
  Transmission Date: 20141212
  Serious: Yes (Hospitalization)
  Sender: FDA-Public Use
  Company Number: FR-ROCHE-1377438

PATIENT
  Age: 68 Year
  Sex: Male
  Weight: 65.7 kg

DRUGS (14)
  1. ROCEPHINE [Suspect]
     Indication: INFECTION
     Route: 065
     Dates: start: 20140207, end: 20140209
  2. CARBOPLATIN [Suspect]
     Indication: PRODUCT USED FOR UNKNOWN INDICATION
     Route: 042
     Dates: start: 20140204
  3. PACLITAXEL [Suspect]
     Indication: PRODUCT USED FOR UNKNOWN INDICATION
     Route: 042
     Dates: start: 20140204
  4. PREVISCAN (FRANCE) [Concomitant]
     Route: 048
     Dates: end: 20140207
  5. HEMIGOXINE [Concomitant]
     Route: 048
  6. SKENAN LP [Concomitant]
     Route: 048
     Dates: end: 20140212
  7. DOLIPRANE [Concomitant]
     Route: 048
  8. VENTOLINE [Concomitant]
  9. SERETIDE [Concomitant]
  10. SEREVENT [Concomitant]
  11. PARACETAMOL [Concomitant]
  12. ACTISKENAN [Concomitant]
  13. FLUCONAZOLE [Concomitant]
  14. BECOTIDE [Concomitant]

REACTIONS (3)
  - Renal tubular necrosis [Recovering/Resolving]
  - Rash maculo-papular [Recovered/Resolved]
  - Purpura [Recovered/Resolved]
